FAERS Safety Report 9504037 (Version 3)
Quarter: 2013Q4

REPORT INFORMATION
  Report Type: Spontaneous
  Country: US (occurrence: None)
  Receive Date: 20130107
  Receipt Date: 20131226
  Transmission Date: 20140711
  Serious: Yes (Other)
  Sender: FDA-Public Use
  Company Number: PHEH2012US018813

PATIENT
  Age: 41 Year
  Sex: Female
  Weight: 81.6 kg

DRUGS (1)
  1. GILENYA [Suspect]
     Indication: MULTIPLE SCLEROSIS
     Route: 048
     Dates: start: 201112, end: 201205

REACTIONS (4)
  - Hallucination [None]
  - Full blood count decreased [None]
  - Lymphocyte count decreased [None]
  - Inappropriate schedule of drug administration [None]
